FAERS Safety Report 21129393 (Version 2)
Quarter: 2024Q4

REPORT INFORMATION
  Report Type: Report from Study
  Country: BR (occurrence: BR)
  Receive Date: 20220725
  Receipt Date: 20241009
  Transmission Date: 20250115
  Serious: Yes (Hospitalization)
  Sender: ABBVIE
  Company Number: BR-ABBVIE-22K-020-4479865-00

PATIENT
  Sex: Female
  Weight: 68 kg

DRUGS (5)
  1. RINVOQ [Suspect]
     Active Substance: UPADACITINIB
     Indication: Rheumatoid arthritis
     Dosage: 1 TABLET?FORM STRENGTH: 15 MILLIGRAM
     Route: 048
     Dates: start: 20210819, end: 2023
  2. RINVOQ [Suspect]
     Active Substance: UPADACITINIB
     Indication: Rheumatoid arthritis
     Dosage: FORM STRENGTH: 15 MILLIGRAM
     Route: 048
  3. AMOXICILLIN [Suspect]
     Active Substance: AMOXICILLIN
     Indication: Helicobacter infection
     Dosage: 2 TABLET?FREQUENCY TEXT: 1 IN THE MORNING AND ONE AT NIGHT
     Route: 065
  4. AMOXICILLIN [Suspect]
     Active Substance: AMOXICILLIN
     Indication: Helicobacter infection
     Dosage: 4 TABLET?FREQUENCY TEXT: 2 TABLETS IN THE MORNING AND 2 AT NIGHT
     Route: 065
     Dates: start: 20240919
  5. TOFACITINIB CITRATE [Concomitant]
     Active Substance: TOFACITINIB CITRATE
     Indication: Product used for unknown indication
     Dosage: 5 MG
     Dates: end: 2024

REACTIONS (21)
  - Gastrointestinal infection [Recovered/Resolved]
  - Oesophagitis [Recovering/Resolving]
  - Illness [Recovered/Resolved]
  - Pain [Recovered/Resolved]
  - Abdominal pain [Unknown]
  - COVID-19 [Recovered/Resolved]
  - Drug hypersensitivity [Unknown]
  - Weight decreased [Unknown]
  - Helicobacter infection [Recovered/Resolved]
  - Oral mucosal erythema [Recovering/Resolving]
  - Pruritus genital [Recovering/Resolving]
  - Bone pain [Not Recovered/Not Resolved]
  - Genital erythema [Recovering/Resolving]
  - Polyarthritis [Not Recovered/Not Resolved]
  - Abdominal pain [Recovered/Resolved]
  - Genital discomfort [Recovering/Resolving]
  - Stomatitis [Recovering/Resolving]
  - Oral discomfort [Recovering/Resolving]
  - Arthralgia [Not Recovered/Not Resolved]
  - Genital burning sensation [Recovering/Resolving]
  - Stress [Unknown]

NARRATIVE: CASE EVENT DATE: 20220101
